FAERS Safety Report 5358098-2 (Version None)
Quarter: 2007Q2

REPORT INFORMATION
  Report Type: 
  Country: None (occurrence: None)
  Receive Date: 20070530
  Receipt Date: 20070315
  Transmission Date: 20071010
  Serious: Yes (Other)
  Sender: FDA-Public Use
  Company Number: US200702001835

PATIENT
  Age: 36 Year
  Sex: Male
  Weight: 86.2 kg

DRUGS (3)
  1. ZYPREXA [Suspect]
     Indication: DISSOCIATIVE AMNESIA
     Dosage: 10 MG, ORAL
     Route: 048
     Dates: start: 20021001, end: 20030801
  2. BUPROPION HCL [Concomitant]
  3. LEXAPRO [Concomitant]

REACTIONS (5)
  - DIABETES MELLITUS [None]
  - DIABETIC COMA [None]
  - DIABETIC KETOACIDOSIS [None]
  - HYPERGLYCAEMIA [None]
  - PANCREATITIS [None]
